FAERS Safety Report 22529934 (Version 1)
Quarter: 2023Q2

REPORT INFORMATION
  Report Type: Spontaneous
  Country: US (occurrence: None)
  Receive Date: 20230605
  Receipt Date: 20230605
  Transmission Date: 20230721
  Serious: No
  Sender: FDA-Public Use
  Company Number: None

PATIENT
  Age: 27 Year
  Sex: Female
  Weight: 46.72 kg

DRUGS (6)
  1. WELIREG [Suspect]
     Active Substance: BELZUTIFAN
     Indication: Brain neoplasm
     Dosage: FREQUENCY : DAILY;?
     Route: 048
     Dates: start: 202111
  2. FAMOTIDINE [Concomitant]
     Active Substance: FAMOTIDINE
  3. GABAPENTIN [Concomitant]
     Active Substance: GABAPENTIN
  4. LIDOCAINE [Concomitant]
     Active Substance: LIDOCAINE
  5. VITAMINS [Concomitant]
     Active Substance: VITAMINS
  6. ZOFRAN [Concomitant]
     Active Substance: ONDANSETRON HYDROCHLORIDE

REACTIONS (1)
  - SARS-CoV-2 test positive [None]

NARRATIVE: CASE EVENT DATE: 20230529
